FAERS Safety Report 13568947 (Version 1)
Quarter: 2017Q2

REPORT INFORMATION
  Report Type: Spontaneous
  Country: US (occurrence: US)
  Receive Date: 20170522
  Receipt Date: 20170522
  Transmission Date: 20170830
  Serious: Yes (Other)
  Sender: FDA-Public Use
  Company Number: US-SAOL THERAPEUTICS-2017SAO00737

PATIENT
  Age: 43 Year
  Sex: Female

DRUGS (10)
  1. BACLOFEN. [Suspect]
     Active Substance: BACLOFEN
     Dosage: 1272.2 ?G, \DAY
     Route: 037
  2. BACLOFEN. [Suspect]
     Active Substance: BACLOFEN
     Dosage: 1211.5 ?G, \DAY
     Route: 037
  3. BACLOFEN. [Suspect]
     Active Substance: BACLOFEN
     Indication: MUSCLE SPASTICITY
     Dosage: 1080 ?G, \DAY
     Route: 037
  4. CLONIDINE. [Suspect]
     Active Substance: CLONIDINE
     Dosage: 61.92 ?G, \DAY
     Route: 037
  5. CLONIDINE. [Suspect]
     Active Substance: CLONIDINE
     Dosage: 60.57 ?G, \DAY
     Route: 037
  6. BUPIVACAINE. [Suspect]
     Active Substance: BUPIVACAINE
     Dosage: 9.542 MG, \DAY
     Route: 037
  7. UNSPECIFIED BLADDER INFECTION DRUG [Concomitant]
  8. BUPIVACAINE. [Suspect]
     Active Substance: BUPIVACAINE
     Dosage: 8.112 MG, \DAY
     Route: 037
  9. CLONIDINE. [Suspect]
     Active Substance: CLONIDINE
     Dosage: 63.61 ?G, \DAY
     Route: 037
  10. BUPIVACAINE. [Suspect]
     Active Substance: BUPIVACAINE
     Dosage: 9.086 MG, \DAY
     Route: 037

REACTIONS (8)
  - Muscle spasms [Recovering/Resolving]
  - Blood lactic acid increased [Unknown]
  - Muscle spasticity [Unknown]
  - Hyperhidrosis [Unknown]
  - Insomnia [Unknown]
  - Pain [Recovering/Resolving]
  - Complication associated with device [Recovered/Resolved]
  - Headache [Recovering/Resolving]

NARRATIVE: CASE EVENT DATE: 2017
